FAERS Safety Report 11921316 (Version 1)
Quarter: 2016Q1

REPORT INFORMATION
  Report Type: Spontaneous
  Country: US (occurrence: US)
  Receive Date: 20160115
  Receipt Date: 20160115
  Transmission Date: 20160526
  Serious: No
  Sender: FDA-Public Use
  Company Number: US-ASTRAZENECA-2016SE02938

PATIENT
  Age: 763 Month
  Sex: Female
  Weight: 76.2 kg

DRUGS (1)
  1. ANASTROZOLE. [Suspect]
     Active Substance: ANASTROZOLE
     Indication: BREAST CANCER
     Route: 048
     Dates: start: 201408

REACTIONS (5)
  - Abdominal distension [Unknown]
  - Abdominal discomfort [Unknown]
  - Back disorder [Not Recovered/Not Resolved]
  - Headache [Unknown]
  - Alopecia [Not Recovered/Not Resolved]

NARRATIVE: CASE EVENT DATE: 201512
